FAERS Safety Report 25122732 (Version 1)
Quarter: 2025Q1

REPORT INFORMATION
  Report Type: Spontaneous
  Country: ES (occurrence: ES)
  Receive Date: 20250326
  Receipt Date: 20250326
  Transmission Date: 20250409
  Serious: Yes (Other)
  Sender: MYLAN
  Company Number: ES-MYLANLABS-2025M1024456

PATIENT
  Age: 66 Year
  Sex: Male

DRUGS (23)
  1. ACETAMINOPHEN [Suspect]
     Active Substance: ACETAMINOPHEN
     Indication: Cancer pain
  2. PACLITAXEL [Suspect]
     Active Substance: PACLITAXEL
     Indication: Lung adenocarcinoma stage IV
  3. PACLITAXEL [Suspect]
     Active Substance: PACLITAXEL
     Indication: Metastases to bone
  4. IBUPROFEN [Suspect]
     Active Substance: IBUPROFEN
     Indication: Cancer pain
     Dosage: 600 MILLIGRAM, Q8H
  5. METAMIZOLE [Suspect]
     Active Substance: METAMIZOLE
     Indication: Cancer pain
  6. FENTANYL [Suspect]
     Active Substance: FENTANYL
     Indication: Cancer pain
     Dosage: 37.5 MICROGRAM, QH
  7. FENTANYL [Suspect]
     Active Substance: FENTANYL
     Dosage: 50 MICROGRAM, QH
  8. FENTANYL [Suspect]
     Active Substance: FENTANYL
     Indication: Cancer pain
  9. PREGABALIN [Suspect]
     Active Substance: PREGABALIN
     Indication: Cancer pain
  10. DEXAMETHASONE [Suspect]
     Active Substance: DEXAMETHASONE
     Indication: Cancer pain
  11. CARBOPLATIN [Suspect]
     Active Substance: CARBOPLATIN
     Indication: Lung adenocarcinoma stage IV
  12. CARBOPLATIN [Suspect]
     Active Substance: CARBOPLATIN
     Indication: Metastases to bone
  13. ACETAMINOPHEN\THIOCOLCHICOSIDE [Suspect]
     Active Substance: ACETAMINOPHEN\THIOCOLCHICOSIDE
     Indication: Cancer pain
  14. OXYCODONE [Suspect]
     Active Substance: OXYCODONE
     Indication: Cancer pain
     Dosage: 20 MILLIGRAM, Q8H
  15. TAPENTADOL [Suspect]
     Active Substance: TAPENTADOL
     Indication: Cancer pain
  16. METHADONE [Suspect]
     Active Substance: METHADONE HYDROCHLORIDE
     Indication: Cancer pain
     Dosage: 10 MILLIGRAM, BID
  17. MORPHINE [Suspect]
     Active Substance: MORPHINE
     Indication: Cancer pain
     Dosage: 1.5 MILLIGRAM, QD; INTRATHECAL CONTINUOUS PERFUSION PUMP
  18. MORPHINE [Suspect]
     Active Substance: MORPHINE
  19. BUPIVACAINE [Concomitant]
     Active Substance: BUPIVACAINE
     Indication: Cancer pain
     Dosage: 4.26 MILLIGRAM, QD; INTRATHECAL CONTINUOUS PERFUSION PUMP
  20. BUPIVACAINE [Concomitant]
     Active Substance: BUPIVACAINE
     Dosage: 16.4 MILLIGRAM, QD; INTRATHECAL CONTINUOUS PERFUSION PUMP
  21. NALOXEGOL [Concomitant]
     Active Substance: NALOXEGOL
     Indication: Constipation
  22. MAGNESIUM [Concomitant]
     Active Substance: MAGNESIUM
     Indication: Constipation
  23. PARAFFIN [Concomitant]
     Active Substance: PARAFFIN
     Indication: Constipation

REACTIONS (2)
  - Drug ineffective [Unknown]
  - Constipation [Recovered/Resolved]
